FAERS Safety Report 23600313 (Version 1)
Quarter: 2024Q1

REPORT INFORMATION
  Report Type: Spontaneous
  Country: US (occurrence: None)
  Receive Date: 20240305
  Receipt Date: 20240305
  Transmission Date: 20240410
  Serious: Yes (Hospitalization)
  Sender: FDA-Public Use
  Company Number: None

PATIENT
  Age: 83 Year
  Sex: Female

DRUGS (1)
  1. BOSENTAN [Suspect]
     Active Substance: BOSENTAN
     Indication: Pulmonary hypertension
     Dosage: 125MG BID ORAL
     Route: 048
     Dates: start: 20190611

REACTIONS (2)
  - Chest pain [None]
  - Pneumonia [None]

NARRATIVE: CASE EVENT DATE: 20240305
